FAERS Safety Report 5122288-4 (Version None)
Quarter: 2006Q4

REPORT INFORMATION
  Report Type: 
  Country: None (occurrence: None)
  Receive Date: 20061003
  Receipt Date: 20060922
  Transmission Date: 20070319
  Serious: Yes (Hospitalization)
  Sender: FDA-Public Use
  Company Number: 2006-147814-NL

PATIENT
  Age: 41 Year
  Sex: Female

DRUGS (3)
  1. PREGNYL [Suspect]
     Indication: IN VITRO FERTILISATION
     Dosage: 375 IU QD
  2. PREGNYL [Suspect]
     Indication: IN VITRO FERTILISATION
     Dosage: 375 IU QD
  3. PREGNYL [Suspect]
     Dosage: 5000 IU, USED ON CYCLE DAY 13

REACTIONS (9)
  - ABDOMINAL PAIN LOWER [None]
  - CAESAREAN SECTION [None]
  - DRUG EXPOSURE BEFORE PREGNANCY [None]
  - NAUSEA [None]
  - OVARIAN TORSION [None]
  - POLYCYSTIC OVARIES [None]
  - PREMATURE BABY [None]
  - PREMATURE RUPTURE OF MEMBRANES [None]
  - TWIN PREGNANCY [None]
